FAERS Safety Report 8427279 (Version 4)
Quarter: 2014Q3

REPORT INFORMATION
  Report Type: Spontaneous
  Country: GB (occurrence: None)
  Receive Date: 20120214
  Receipt Date: 20140821
  Transmission Date: 20150326
  Serious: Yes (Death, Other)
  Sender: FDA-Public Use
  Company Number: AUR-APL-2012-00858

PATIENT
  Age: 36 Year
  Sex: Male

DRUGS (8)
  1. VALPROATE SODIUM. [Concomitant]
     Active Substance: VALPROATE SODIUM
  2. FOLIC ACID. [Concomitant]
     Active Substance: FOLIC ACID
  3. SIMVASTATIN. [Suspect]
     Active Substance: SIMVASTATIN
     Indication: PRODUCT USED FOR UNKNOWN INDICATION
     Dosage: UNKNOWN, ORAL
     Route: 048
  4. ARIPIPRAZOLE [Suspect]
     Active Substance: ARIPIPRAZOLE
     Indication: SCHIZOPHRENIA
     Dosage: (5 MG), ORAL
     Route: 048
  5. CLONAZEPAM. [Concomitant]
     Active Substance: CLONAZEPAM
  6. CLOZAPINE. [Suspect]
     Active Substance: CLOZAPINE
     Indication: SCHIZOPHRENIA
     Dosage: (450 MG), ORAL
     Route: 048
     Dates: end: 20120109
  7. OMEPRAZOLE. [Concomitant]
     Active Substance: OMEPRAZOLE
  8. WARFARIN SODIUM. [Concomitant]
     Active Substance: WARFARIN SODIUM

REACTIONS (26)
  - Blood creatine phosphokinase increased [None]
  - Splenomegaly [None]
  - Generalised oedema [None]
  - Blood triglycerides increased [None]
  - Fall [None]
  - Alanine aminotransferase increased [None]
  - Arteriosclerosis [None]
  - Hyperosmolar state [None]
  - Otitis externa [None]
  - Renal impairment [None]
  - Haemoglobin decreased [None]
  - Circulatory collapse [None]
  - Neuroleptic malignant syndrome [None]
  - Peritonitis [None]
  - Liver injury [None]
  - Hepatomegaly [None]
  - Obesity [None]
  - Sepsis [None]
  - Large intestine perforation [None]
  - Pulmonary oedema [None]
  - Hepatic function abnormal [None]
  - Aspartate aminotransferase increased [None]
  - Cerebral arteriosclerosis [None]
  - Diabetes mellitus [None]
  - Multi-organ failure [None]
  - Haemorrhage [None]

NARRATIVE: CASE EVENT DATE: 20120109
